FAERS Safety Report 5570312-7 (Version None)
Quarter: 2007Q4

REPORT INFORMATION
  Report Type: 
  Country: None (occurrence: None)
  Receive Date: 20071219
  Receipt Date: 20071219
  Transmission Date: 20080405
  Serious: Yes (Hospitalization)
  Sender: FDA-Public Use
  Company Number: None

PATIENT
  Age: 60 Year
  Sex: Male
  Weight: 57.9697 kg

DRUGS (11)
  1. TAXOTERE [Suspect]
     Indication: NEOPLASM MALIGNANT
     Dosage: 76.5 MG IV Q 21 DAYS
     Route: 042
     Dates: start: 20071126
  2. OXALIPLATIN [Suspect]
     Indication: NEOPLASM MALIGNANT
     Dosage: 170 MG IV Q 21 DAY
     Route: 042
     Dates: start: 20071126
  3. ATELONOLOL [Concomitant]
  4. DEXAMETHASONE TAB [Concomitant]
  5. FILGRASTIM [Concomitant]
  6. HYDROCODONE BITARTRATE [Concomitant]
  7. NIRTOGLYCERINE [Concomitant]
  8. ENSURE [Concomitant]
  9. ONDANSETRON [Concomitant]
  10. PROCHOLORPERZINE SALSALATE [Concomitant]
  11. COUMADIN [Concomitant]

REACTIONS (7)
  - ANAEMIA [None]
  - BLOOD FIBRINOGEN INCREASED [None]
  - FAECES DISCOLOURED [None]
  - INTERNATIONAL NORMALISED RATIO INCREASED [None]
  - MELAENA [None]
  - PLATELET COUNT INCREASED [None]
  - PROTHROMBIN TIME PROLONGED [None]
